FAERS Safety Report 8270027-0 (Version None)
Quarter: 2012Q1

REPORT INFORMATION
  Report Type: 
  Country: None (occurrence: None)
  Receive Date: 20120327
  Receipt Date: 20100330
  Transmission Date: 20120608
  Serious: Yes (Hospitalization)
  Sender: FDA-Public Use
  Company Number: PHHY2010US17423

PATIENT
  Age: 62 Year
  Sex: Female

DRUGS (2)
  1. ANTINEOPLASTIC AGENT (NO INGREDIENTS/SUBSTANCES) [Suspect]
     Indication: ACUTE LYMPHOCYTIC LEUKAEMIA
     Dates: start: 20081201, end: 20090601
  2. GLEEVEC [Suspect]
     Indication: ACUTE LYMPHOCYTIC LEUKAEMIA
     Dosage: 600 MG, QD, ORAL
     Route: 048

REACTIONS (2)
  - FEBRILE NEUTROPENIA [None]
  - INFECTION [None]
